FAERS Safety Report 8435778-3 (Version None)
Quarter: 2012Q2

REPORT INFORMATION
  Report Type: 
  Country: None (occurrence: None)
  Receive Date: 20120614
  Receipt Date: 20120601
  Transmission Date: 20120825
  Serious: Yes (Hospitalization)
  Sender: FDA-Public Use
  Company Number: US-ELI_LILLY_AND_COMPANY-US201205005616

PATIENT
  Sex: Female

DRUGS (14)
  1. VITAMIN D [Concomitant]
     Dosage: UNK, UNKNOWN
  2. VITAMIN B COMPLEX CAP [Concomitant]
     Dosage: UNK, UNKNOWN
  3. ANTIDEPRESSANTS [Concomitant]
     Dosage: UNK, UNKNOWN
  4. CALCIUM CARBONATE [Concomitant]
     Dosage: UNK, UNKNOWN
  5. PEPCID [Concomitant]
     Dosage: UNK, UNKNOWN
  6. MIRTAZAPINE [Concomitant]
     Dosage: UNK, UNKNOWN
  7. TIMOLOL MALEATE [Concomitant]
     Dosage: UNK, UNKNOWN
  8. LEUCOVORIN CALCIUM [Concomitant]
     Dosage: UNK, UNKNOWN
  9. VITAMIN B-12 [Concomitant]
     Dosage: UNK, UNKNOWN
  10. METOPROLOL TARTRATE [Concomitant]
     Dosage: UNK, UNKNOWN
  11. FORTEO [Suspect]
     Indication: OSTEOPOROSIS
     Dosage: 20 UG, QD
     Dates: start: 20120506
  12. LOTENSIN [Concomitant]
     Dosage: UNK, UNKNOWN
  13. ASPIRIN [Concomitant]
     Dosage: UNK, UNKNOWN
  14. ANTIHYPERTENSIVES [Concomitant]
     Dosage: UNK, UNKNOWN

REACTIONS (3)
  - BLOOD PRESSURE DECREASED [None]
  - AMNESIA [None]
  - HOSPITALISATION [None]
